FAERS Safety Report 11331465 (Version 1)
Quarter: 2015Q3

REPORT INFORMATION
  Report Type: Spontaneous
  Country: US (occurrence: US)
  Receive Date: 20150803
  Receipt Date: 20150803
  Transmission Date: 20151125
  Serious: No
  Sender: FDA-Public Use
  Company Number: US-ELI_LILLY_AND_COMPANY-US201505006748

PATIENT
  Age: 68 Year
  Sex: Male

DRUGS (5)
  1. METOPROLOL [Concomitant]
     Active Substance: METOPROLOL
  2. ALLOPURINOL. [Concomitant]
     Active Substance: ALLOPURINOL
  3. CIALIS [Suspect]
     Active Substance: TADALAFIL
     Indication: ERECTILE DYSFUNCTION
     Dosage: 5 MG, UNK
     Route: 065
  4. SIMVASTATIN. [Concomitant]
     Active Substance: SIMVASTATIN
  5. CIALIS [Suspect]
     Active Substance: TADALAFIL
     Indication: BENIGN PROSTATIC HYPERPLASIA
     Dosage: 2.5 MG, QD
     Route: 065
     Dates: start: 20150403

REACTIONS (3)
  - Micturition frequency decreased [Unknown]
  - Dyspepsia [Recovered/Resolved]
  - Drug ineffective [Unknown]
